FAERS Safety Report 20617914 (Version 1)
Quarter: 2022Q1

REPORT INFORMATION
  Report Type: Spontaneous
  Country: DE (occurrence: DE)
  Receive Date: 20220321
  Receipt Date: 20220321
  Transmission Date: 20220423
  Serious: Yes (Hospitalization)
  Sender: FDA-Public Use
  Company Number: DE-ROCHE-2895676

PATIENT
  Sex: Female

DRUGS (3)
  1. TOCILIZUMAB [Suspect]
     Active Substance: TOCILIZUMAB
     Indication: Rheumatoid arthritis
     Dosage: SUBSEQUENT DOSE OF TOCILIZUMAB 162 MG WAS ADMINISTERED ON 23/DEC/2016, 30/JUN/2017, 10/JAN/2018, 29/
     Route: 058
     Dates: start: 201609
  2. CIMZIA [Suspect]
     Active Substance: CERTOLIZUMAB PEGOL
     Indication: Rheumatoid arthritis
     Dosage: 400 MILLIGRAM
     Dates: start: 20160629
  3. CIMZIA [Suspect]
     Active Substance: CERTOLIZUMAB PEGOL
     Dosage: 200 MILLIGRAM
     Dates: start: 20160808, end: 201609

REACTIONS (5)
  - Angina pectoris [Recovered/Resolved]
  - Microangiopathy [Recovered/Resolved]
  - Cystitis glandularis [Unknown]
  - Nasopharyngitis [Recovered/Resolved]
  - Otitis media [Recovered/Resolved]

NARRATIVE: CASE EVENT DATE: 20180315
